FAERS Safety Report 8173430-2 (Version None)
Quarter: 2012Q1

REPORT INFORMATION
  Report Type: 
  Country: None (occurrence: None)
  Receive Date: 20120229
  Receipt Date: 20120228
  Transmission Date: 20120608
  Serious: No
  Sender: FDA-Public Use
  Company Number: US-PFIZER INC-2012052964

PATIENT
  Sex: Male

DRUGS (2)
  1. IBUPROFEN (ADVIL) [Suspect]
     Dosage: 400 MG, 8 HOURLY
     Route: 048
     Dates: start: 20120223, end: 20120224
  2. IBUPROFEN (ADVIL) [Suspect]
     Indication: TOOTHACHE
     Dosage: 400 MG, 8 HOURLY
     Route: 048
     Dates: start: 20120221, end: 20120223

REACTIONS (2)
  - EXPIRED DRUG ADMINISTERED [None]
  - DRUG INEFFECTIVE [None]
